FAERS Safety Report 5664176-0 (Version None)
Quarter: 2008Q1

REPORT INFORMATION
  Report Type: 
  Country: None (occurrence: None)
  Receive Date: 20080312
  Receipt Date: 20080226
  Transmission Date: 20080703
  Serious: Yes (Hospitalization)
  Sender: FDA-Public Use
  Company Number: 199319

PATIENT
  Age: 51 Year
  Sex: Female
  Weight: 92.9874 kg

DRUGS (8)
  1. AVONEX [Suspect]
     Indication: MULTIPLE SCLEROSIS
     Dosage: 30 UG;QW;IM
     Route: 030
     Dates: start: 19970101
  2. METHOTREXATE [Concomitant]
  3. PREDNISONE TAB [Concomitant]
  4. ARAVA [Concomitant]
  5. FOLIC ACID [Concomitant]
  6. VIOXX [Concomitant]
  7. BACLOFEN [Concomitant]
  8. TYLENOL W/ CODEINE NO. 3 [Concomitant]

REACTIONS (9)
  - ABSCESS LIMB [None]
  - ARTHROPOD BITE [None]
  - INJECTION SITE BRUISING [None]
  - INJECTION SITE INFECTION [None]
  - INJECTION SITE PAIN [None]
  - INJECTION SITE SWELLING [None]
  - OSTEOARTHRITIS [None]
  - SCRATCH [None]
  - SKIN LACERATION [None]
